FAERS Safety Report 10196312 (Version 1)
Quarter: 2014Q2

REPORT INFORMATION
  Report Type: Spontaneous
  Country: US (occurrence: None)
  Receive Date: 20140522
  Receipt Date: 20140522
  Transmission Date: 20141212
  Serious: Yes (Hospitalization, Other)
  Sender: FDA-Public Use
  Company Number: ADR-2010-9599

PATIENT
  Sex: Male

DRUGS (2)
  1. COMPOUNDED BACLOFEN [Suspect]
     Indication: MUSCLE SPASTICITY
  2. MORPHINE SULFATE [Suspect]

REACTIONS (12)
  - Underdose [None]
  - Pain [None]
  - Muscle spasticity [None]
  - Cellulitis [None]
  - Neuralgia [None]
  - Muscle spasms [None]
  - Mass [None]
  - Inflammation [None]
  - Product compounding quality issue [None]
  - Granuloma [None]
  - Medical device complication [None]
  - No therapeutic response [None]
